FAERS Safety Report 23274041 (Version 1)
Quarter: 2023Q4

REPORT INFORMATION
  Report Type: Report from Study
  Country: KR (occurrence: KR)
  Receive Date: 20231208
  Receipt Date: 20231208
  Transmission Date: 20240110
  Serious: Yes (Other)
  Sender: FDA-Public Use
  Company Number: KR-GILEAD-2023-0653841

PATIENT
  Age: 54 Year
  Sex: Male

DRUGS (1)
  1. ADEFOVIR DIPIVOXIL [Suspect]
     Active Substance: ADEFOVIR DIPIVOXIL
     Indication: Hepatitis B
     Dosage: 10 MG, QD (4 YRS DURATION)
     Route: 065

REACTIONS (3)
  - Hypophosphataemic osteomalacia [Recovering/Resolving]
  - Nephropathy [Unknown]
  - Fanconi syndrome acquired [Recovering/Resolving]
